FAERS Safety Report 18336068 (Version 1)
Quarter: 2020Q4

REPORT INFORMATION
  Report Type: Spontaneous
  Country: CA (occurrence: CA)
  Receive Date: 20201001
  Receipt Date: 20201001
  Transmission Date: 20210113
  Serious: Yes (Life-Threatening, Other)
  Sender: FDA-Public Use
  Company Number: CA-TEVA-2020-CA-1833893

PATIENT
  Age: 89 Year
  Sex: Female

DRUGS (2)
  1. FENTANYL. [Suspect]
     Active Substance: FENTANYL
     Indication: PAIN MANAGEMENT
     Route: 062
  2. METHOTRIMEPRAZINE [Concomitant]
     Active Substance: LEVOMEPROMAZINE

REACTIONS (5)
  - Hypoaesthesia [Unknown]
  - Pupillary reflex impaired [Unknown]
  - Respiratory rate decreased [Unknown]
  - Unresponsive to stimuli [Unknown]
  - Mydriasis [Unknown]
